FAERS Safety Report 22590844 (Version 1)
Quarter: 2023Q2

REPORT INFORMATION
  Report Type: Spontaneous
  Country: SK (occurrence: SK)
  Receive Date: 20230612
  Receipt Date: 20230612
  Transmission Date: 20230721
  Serious: Yes (Other)
  Sender: FDA-Public Use
  Company Number: SK-002147023-NVSC2023SK124989

PATIENT

DRUGS (1)
  1. RUXOLITINIB [Suspect]
     Active Substance: RUXOLITINIB
     Indication: Graft versus host disease
     Dosage: 10 MG, BID (TWICE DAILY)
     Route: 065
     Dates: start: 20221128, end: 202304

REACTIONS (5)
  - BK virus infection [Unknown]
  - Device related sepsis [Unknown]
  - Cytomegalovirus infection [Unknown]
  - Haematotoxicity [Unknown]
  - Pneumonia [Unknown]

NARRATIVE: CASE EVENT DATE: 20230401
